FAERS Safety Report 10669255 (Version 2)
Quarter: 2014Q4

REPORT INFORMATION
  Report Type: Spontaneous
  Country: US (occurrence: US)
  Receive Date: 20141222
  Receipt Date: 20141231
  Transmission Date: 20150529
  Serious: Yes (Other)
  Sender: FDA-Public Use
  Company Number: ALCN2014US007061

PATIENT
  Age: 49 Year
  Sex: Female

DRUGS (4)
  1. ATROPINE SULFATE. [Suspect]
     Active Substance: ATROPINE SULFATE
     Indication: PNEUMOCOCCAL BACTERAEMIA
  2. OFLOXACIN. [Suspect]
     Active Substance: OFLOXACIN
     Indication: PNEUMOCOCCAL BACTERAEMIA
  3. OFLOXACIN. [Suspect]
     Active Substance: OFLOXACIN
     Indication: ENDOPHTHALMITIS
     Dosage: 1 DF, QID
     Route: 047
  4. ATROPINE SULFATE. [Suspect]
     Active Substance: ATROPINE SULFATE
     Indication: ENDOPHTHALMITIS
     Dosage: 1 DF, TID
     Route: 047

REACTIONS (3)
  - Drug ineffective [Recovered/Resolved]
  - Condition aggravated [Recovered/Resolved]
  - Visual acuity reduced [Recovered/Resolved]
